FAERS Safety Report 5876331-5 (Version None)
Quarter: 2008Q3

REPORT INFORMATION
  Report Type: 
  Country: None (occurrence: None)
  Receive Date: 20080908
  Receipt Date: 20080908
  Transmission Date: 20090109
  Serious: Yes (Other)
  Sender: FDA-Public Use
  Company Number: None

PATIENT
  Sex: Female
  Weight: 50.3493 kg

DRUGS (3)
  1. HERCEPTIN [Suspect]
     Indication: BREAST CANCER STAGE I
     Dosage: 310 MG EVERY 3 WEEKS IV DRIP
     Route: 041
     Dates: start: 20080411, end: 20080728
  2. DOXORUBICIN HCL [Concomitant]
  3. CYCLOPHOSPHAMIDE [Concomitant]

REACTIONS (4)
  - FORMICATION [None]
  - MUSCLE SPASMS [None]
  - PRURITUS [None]
  - RASH [None]
